FAERS Safety Report 7190361-5 (Version None)
Quarter: 2010Q4

REPORT INFORMATION
  Report Type: 
  Country: None (occurrence: None)
  Receive Date: 20101223
  Receipt Date: 20101215
  Transmission Date: 20110411
  Serious: Yes (Other)
  Sender: FDA-Public Use
  Company Number: US-SANOFI-AVENTIS-2010SA076323

PATIENT
  Age: 79 Year
  Sex: Female

DRUGS (4)
  1. LANTUS [Suspect]
     Indication: TYPE 2 DIABETES MELLITUS
     Dosage: DOSE:13 UNIT(S)
     Route: 058
  2. LANTUS [Suspect]
     Dosage: DOSE:14 UNIT(S)
     Route: 058
  3. HUMALOG [Concomitant]
     Dosage: PER SLIDING SCALE WITH MEALS
  4. ASPIRIN [Concomitant]

REACTIONS (6)
  - BLOOD GLUCOSE DECREASED [None]
  - BLOOD GLUCOSE INCREASED [None]
  - CONTUSION [None]
  - FALL [None]
  - INJECTION SITE PRURITUS [None]
  - UPPER LIMB FRACTURE [None]
